FAERS Safety Report 7001797-7 (Version None)
Quarter: 2010Q3

REPORT INFORMATION
  Report Type: 
  Country: None (occurrence: None)
  Receive Date: 20100920
  Receipt Date: 20080229
  Transmission Date: 20110219
  Serious: Yes (Hospitalization, Other)
  Sender: FDA-Public Use
  Company Number: US-ASTRAZENECA-2006UW10825

PATIENT
  Age: 38 Year
  Sex: Male
  Weight: 92.5 kg

DRUGS (13)
  1. SEROQUEL [Suspect]
     Indication: SCHIZOPHRENIA
     Route: 048
     Dates: start: 20020801
  2. SEROQUEL [Suspect]
     Indication: BIPOLAR DISORDER
     Route: 048
     Dates: start: 20020801
  3. SEROQUEL [Suspect]
     Indication: DEPRESSION
     Route: 048
     Dates: start: 20020801
  4. NAVANE [Concomitant]
  5. ZYPREXA [Concomitant]
  6. METFORMIN [Concomitant]
     Dosage: 500 BID
     Dates: start: 20030924
  7. VISTARIL [Concomitant]
     Route: 048
     Dates: start: 20030816
  8. TEGRETOL [Concomitant]
     Route: 048
     Dates: start: 20030816
  9. WELLBUTRIN [Concomitant]
     Dates: start: 20031023
  10. GLUCOTROL [Concomitant]
     Dates: start: 20031023
  11. MOTRIN [Concomitant]
     Indication: NECK PAIN
     Route: 048
     Dates: start: 20031023
  12. VICODIN [Concomitant]
     Dates: start: 20051027
  13. CODEINE [Concomitant]
     Dates: start: 20051027

REACTIONS (8)
  - BLOOD CHOLESTEROL INCREASED [None]
  - BLOOD GLUCOSE INCREASED [None]
  - DIABETES MELLITUS [None]
  - DIABETES MELLITUS INADEQUATE CONTROL [None]
  - ESSENTIAL HYPERTENSION [None]
  - HYPERTENSION [None]
  - HYPOGLYCAEMIA [None]
  - TYPE 2 DIABETES MELLITUS [None]
